FAERS Safety Report 5392662-X (Version None)
Quarter: 2007Q3

REPORT INFORMATION
  Report Type: 
  Country: None (occurrence: None)
  Receive Date: 20070720
  Receipt Date: 20070712
  Transmission Date: 20080115
  Serious: Yes (Hospitalization, Other)
  Sender: FDA-Public Use
  Company Number: GB-ABBOTT-07P-167-0374508-00

PATIENT
  Sex: Male
  Weight: 3.5 kg

DRUGS (7)
  1. CLARITHROMYCIN [Suspect]
     Indication: DRUG EXPOSURE DURING PREGNANCY
     Route: 064
  2. IPRATROPIUM BROMIDE [Suspect]
     Indication: DRUG EXPOSURE DURING PREGNANCY
     Route: 064
  3. SALBUTAMOL [Suspect]
     Indication: DRUG EXPOSURE DURING PREGNANCY
     Route: 064
  4. MAGNESIUM SULFATE [Suspect]
     Indication: DRUG EXPOSURE DURING PREGNANCY
     Route: 064
  5. AMOXICILLIN [Suspect]
     Indication: DRUG EXPOSURE DURING PREGNANCY
     Route: 064
  6. HYDROCORTISONE [Suspect]
     Indication: DRUG EXPOSURE DURING PREGNANCY
     Route: 064
  7. AMINOPHYLLINE [Suspect]
     Indication: DRUG EXPOSURE DURING PREGNANCY
     Route: 064

REACTIONS (2)
  - FOETAL DISTRESS SYNDROME [None]
  - TACHYCARDIA FOETAL [None]
